FAERS Safety Report 4375921-9 (Version None)
Quarter: 2004Q2

REPORT INFORMATION
  Report Type: 
  Country: None (occurrence: None)
  Receive Date: 20040609
  Receipt Date: 20040609
  Transmission Date: 20050107
  Serious: Yes (Hospitalization)
  Sender: FDA-Public Use
  Company Number: None

PATIENT
  Sex: Male

DRUGS (7)
  1. WARFARIN SODIUM [Suspect]
     Indication: MITRAL VALVE REPLACEMENT
  2. ACETAMINOPHEN [Concomitant]
  3. AMIODARONE HCL [Concomitant]
  4. BUMETANIDE [Concomitant]
  5. LOSARTAN POTASSIUM [Concomitant]
  6. CHLORDIAZEPRIDE [Concomitant]
  7. ALLOPURIOL [Concomitant]

REACTIONS (4)
  - DIZZINESS [None]
  - FAECES DISCOLOURED [None]
  - HAEMATOCHEZIA [None]
  - HAEMOGLOBIN DECREASED [None]
